FAERS Safety Report 4293808-7 (Version None)
Quarter: 2004Q1

REPORT INFORMATION
  Report Type: 
  Country: None (occurrence: None)
  Receive Date: 20040212
  Receipt Date: 20040201
  Transmission Date: 20041129
  Serious: Yes (Other)
  Sender: FDA-Public Use
  Company Number: PHNU2004DE00766

PATIENT
  Sex: Male

DRUGS (16)
  1. TEGRETOL [Suspect]
     Indication: EPILEPSY
     Dosage: 1600MG/DAY
     Route: 048
     Dates: start: 19820101, end: 20010101
  2. ZENTROPIL [Suspect]
     Route: 065
  3. ERGENYL ^SANOFI-SYNTHELABO^ [Suspect]
     Route: 065
  4. NEURONTIN [Suspect]
     Route: 065
  5. LAMICTAL [Suspect]
     Route: 065
  6. GABITRIL [Suspect]
     Route: 065
  7. TOPAMAX [Suspect]
     Route: 065
  8. KEPPRA [Suspect]
     Route: 065
  9. CARBABETA [Suspect]
     Indication: EPILEPSY
     Route: 065
     Dates: start: 20010101
  10. NACOM ^DUPONT PHARMA^ [Suspect]
     Indication: PARKINSON'S DISEASE
     Route: 065
  11. MOVERGAN [Suspect]
     Indication: PARKINSON'S DISEASE
     Route: 065
  12. MADOPAR [Suspect]
     Indication: PARKINSON'S DISEASE
     Route: 065
  13. LEVODOPA [Suspect]
     Indication: PARKINSON'S DISEASE
     Route: 065
  14. AMANTADIN [Suspect]
     Route: 065
  15. COMTESS [Suspect]
     Indication: PARKINSON'S DISEASE
     Route: 065
  16. PARKOTIL [Suspect]
     Indication: PARKINSON'S DISEASE
     Route: 065

REACTIONS (25)
  - ABNORMAL BEHAVIOUR [None]
  - ALOPECIA [None]
  - BRADYPHRENIA [None]
  - CONDITION AGGRAVATED [None]
  - COORDINATION ABNORMAL [None]
  - DEPRESSION [None]
  - DIFFICULTY IN WALKING [None]
  - DISTURBANCE IN ATTENTION [None]
  - DYSKINESIA [None]
  - ERECTILE DYSFUNCTION [None]
  - FALL [None]
  - FATIGUE [None]
  - GAIT DISTURBANCE [None]
  - MEMORY IMPAIRMENT [None]
  - MENTAL IMPAIRMENT [None]
  - MOTOR DYSFUNCTION [None]
  - MOVEMENT DISORDER [None]
  - MUSCLE CRAMP [None]
  - MUSCLE TWITCHING [None]
  - MYALGIA [None]
  - NEUROLEPTIC MALIGNANT SYNDROME [None]
  - PARALYSIS [None]
  - PARKINSON'S DISEASE [None]
  - THINKING ABNORMAL [None]
  - TREMOR [None]
